FAERS Safety Report 5742358-7 (Version None)
Quarter: 2008Q2

REPORT INFORMATION
  Report Type: 
  Country: None (occurrence: None)
  Receive Date: 20080514
  Receipt Date: 20070629
  Transmission Date: 20081010
  Serious: Yes (Hospitalization)
  Sender: FDA-Public Use
  Company Number: US200707001524

PATIENT
  Age: 26 Year
  Sex: Male
  Weight: 85 kg

DRUGS (2)
  1. KEFLEX [Suspect]
     Indication: AMPUTATION
     Dosage: 500 MG, 4/D
     Dates: start: 20050418, end: 20050420
  2. LORTAB [Concomitant]

REACTIONS (1)
  - PANCREATITIS ACUTE [None]
